FAERS Safety Report 7186865-1 (Version None)
Quarter: 2010Q4

REPORT INFORMATION
  Report Type: 
  Country: None (occurrence: None)
  Receive Date: 20101222
  Receipt Date: 20101216
  Transmission Date: 20110411
  Serious: Yes (Other)
  Sender: FDA-Public Use
  Company Number: B0690186A

PATIENT

DRUGS (1)
  1. ARIXTRA [Suspect]
     Route: 058

REACTIONS (1)
  - LIVER FUNCTION TEST ABNORMAL [None]
